FAERS Safety Report 4891284-4 (Version None)
Quarter: 2006Q1

REPORT INFORMATION
  Report Type: 
  Country: None (occurrence: None)
  Receive Date: 20060123
  Receipt Date: 20060104
  Transmission Date: 20060701
  Serious: Yes (Hospitalization, Other)
  Sender: FDA-Public Use
  Company Number: 6019623

PATIENT
  Age: 81 Year
  Sex: Female

DRUGS (8)
  1. BISOPROLOL FUMARATE [Suspect]
     Indication: ESSENTIAL HYPERTENSION
     Dosage: 0,5 DOSAGE ORAL
     Route: 048
  2. TERCIAN          (ORAL DROPS) (CYAMEMAZINE) [Suspect]
     Indication: BIPOLAR I DISORDER
     Dosage: 15 DROPS PER DAY (15 OTHER, 1 IN 1 D)ORAL
     Route: 048
     Dates: start: 20051115
  3. ATHYMIL               (MIANSERINHYDROCHLORIDE) [Suspect]
     Indication: BIPOLAR I DISORDER
     Dosage: 1 DOSAGE FROMS 91 DOSAGE FROMS, 1 IN 1 D) ORAL
     Route: 048
  4. DEFANYL                (AMOXAPINE) [Suspect]
     Indication: BIPOLAR I DISORDER
     Dosage: 2 DOSAGE FROMS [2 DOSAGE FORMS, 1 D) ORAL
     Route: 048
     Dates: start: 20051115
  5. ALDALIX               (SPIRONOLACTONE, FUROSEMIDE) [Suspect]
     Indication: ESSENTIAL HYPERTENSION
     Dosage: 1 DOSAGE FORMS (1 DOSAGE FORMS, 1 IN 1 D) ORAL
     Route: 048
     Dates: start: 20051115
  6. TEMESTA                (LORAZEPAM) [Suspect]
     Indication: BIPOLAR I DISORDER
     Dosage: 2 DOSAGE FORMS (2 DOSAGE FROMS,1D) ORAL
     Route: 048
  7. TOPALGIC                    (TRAMADOL HYDROCHLORIDE) [Suspect]
     Indication: DRUG USE FOR UNKNOWN INDICATION
     Dosage: 250MG
     Route: 047
  8. LOKEN              (NICARDIPINE HYDROHCLORIDE) [Suspect]
     Indication: DRUG USE FOR UNKNOWN INDICATION
     Dosage: 50MG
     Route: 048

REACTIONS (4)
  - FALL [None]
  - MALAISE [None]
  - ORTHOSTATIC HYPOTENSION [None]
  - RADIUS FRACTURE [None]
